FAERS Safety Report 7475738-2 (Version None)
Quarter: 2011Q2

REPORT INFORMATION
  Report Type: 
  Country: None (occurrence: None)
  Receive Date: 20110510
  Receipt Date: 20110510
  Transmission Date: 20111010
  Serious: Yes (Hospitalization, Disabling, Other)
  Sender: FDA-Public Use
  Company Number: None

PATIENT
  Age: 79 Year
  Sex: Male
  Weight: 68.0396 kg

DRUGS (1)
  1. LISINOPRIL [Suspect]
     Indication: HYPERTENSION
     Dosage: 1 TABLET DAILY PO
     Route: 048
     Dates: start: 20101129, end: 20101210

REACTIONS (13)
  - URINARY RETENTION [None]
  - ABASIA [None]
  - NERVE INJURY [None]
  - HEADACHE [None]
  - DIZZINESS [None]
  - FALL [None]
  - BALANCE DISORDER [None]
  - MUSCLE DISORDER [None]
  - DIARRHOEA [None]
  - PROSTATOMEGALY [None]
  - WEIGHT DECREASED [None]
  - FATIGUE [None]
  - BLOOD CREATINE INCREASED [None]
